FAERS Safety Report 11387461 (Version 7)
Quarter: 2017Q1

REPORT INFORMATION
  Report Type: Report from Study
  Country: JP (occurrence: JP)
  Receive Date: 20150817
  Receipt Date: 20170208
  Transmission Date: 20170428
  Serious: Yes (Life-Threatening, Hospitalization)
  Sender: FDA-Public Use
  Company Number: JP-EISAI MEDICAL RESEARCH-EC-2015-009513

PATIENT
  Age: 52 Year
  Sex: Female
  Weight: 45 kg

DRUGS (12)
  1. SULBACILLIN [Concomitant]
     Active Substance: AMPICILLIN SODIUM\SULBACTAM SODIUM
  2. AROMASIN [Concomitant]
     Active Substance: EXEMESTANE
  3. LENVIMA [Suspect]
     Active Substance: LENVATINIB
     Route: 048
     Dates: start: 20150911
  4. THYRADIN S [Concomitant]
     Active Substance: LEVOTHYROXINE SODIUM
  5. RINDERON V [Concomitant]
     Active Substance: BETAMETHASONE VALERATE
  6. LENVIMA [Suspect]
     Active Substance: LENVATINIB
     Route: 048
     Dates: start: 20150825, end: 20150909
  7. ONEALFA [Concomitant]
     Active Substance: ALFACALCIDOL
  8. NEXIUM [Concomitant]
     Active Substance: ESOMEPRAZOLE MAGNESIUM
  9. OXYCONTIN [Concomitant]
     Active Substance: OXYCODONE HYDROCHLORIDE
  10. OLMETEC [Concomitant]
     Active Substance: OLMESARTAN MEDOXOMIL
  11. LENVIMA [Suspect]
     Active Substance: LENVATINIB
     Indication: FOLLICULAR THYROID CANCER
     Route: 048
     Dates: start: 20150804, end: 20150818
  12. LOXONIN [Concomitant]
     Active Substance: LOXOPROFEN SODIUM

REACTIONS (1)
  - Arteriospasm coronary [Recovering/Resolving]

NARRATIVE: CASE EVENT DATE: 20151208
